FAERS Safety Report 8762554 (Version 2)
Quarter: 2012Q4

REPORT INFORMATION
  Report Type: 
  Country: US (occurrence: US)
  Receive Date: 20120830
  Receipt Date: 20121005
  Transmission Date: 20130627
  Serious: No
  Sender: FDA-Public Use
  Company Number: US-PFIZER INC-2012209843

PATIENT
  Sex: Female

DRUGS (2)
  1. PREMARIN [Suspect]
     Dosage: UNK
     Dates: start: 20110119
  2. PROTONIX [Concomitant]
     Dosage: UNK
     Dates: start: 20110119

REACTIONS (1)
  - Hot flush [Unknown]
